FAERS Safety Report 7583187-1 (Version None)
Quarter: 2011Q2

REPORT INFORMATION
  Report Type: 
  Country: None (occurrence: None)
  Receive Date: 20110630
  Receipt Date: 20110622
  Transmission Date: 20111010
  Serious: Yes (Hospitalization)
  Sender: FDA-Public Use
  Company Number: US-SANOFI-AVENTIS-2011SA039743

PATIENT
  Age: 54 Year
  Sex: Female

DRUGS (4)
  1. LANTUS [Suspect]
     Indication: TYPE 2 DIABETES MELLITUS
     Dosage: DOSE:60 UNIT(S)
     Route: 058
     Dates: start: 20110601
  2. SOLOSTAR [Suspect]
     Indication: TYPE 2 DIABETES MELLITUS
     Dates: start: 20110601
  3. NOVOLOG [Suspect]
     Route: 065
     Dates: end: 20110601
  4. HUMALOG [Suspect]
     Dosage: DOSE:25 UNIT(S)
     Route: 065

REACTIONS (3)
  - STAPHYLOCOCCAL INFECTION [None]
  - DIABETIC FOOT [None]
  - BLOOD GLUCOSE INCREASED [None]
